FAERS Safety Report 9432481 (Version 1)
Quarter: 2013Q3

REPORT INFORMATION
  Report Type: Spontaneous
  Country: BR (occurrence: BR)
  Receive Date: 20130731
  Receipt Date: 20130731
  Transmission Date: 20140515
  Serious: Yes (Hospitalization, Other)
  Sender: FDA-Public Use
  Company Number: BR-ROCHE-1254024

PATIENT
  Sex: Female

DRUGS (1)
  1. MABTHERA [Suspect]
     Indication: PRODUCT USED FOR UNKNOWN INDICATION
     Route: 065

REACTIONS (6)
  - Coagulopathy [Unknown]
  - Blood disorder [Unknown]
  - Hypersensitivity [Unknown]
  - Tachycardia [Unknown]
  - Swelling [Recovering/Resolving]
  - Ill-defined disorder [Unknown]
